FAERS Safety Report 15776486 (Version 1)
Quarter: 2018Q4

REPORT INFORMATION
  Report Type: Spontaneous
  Country: US (occurrence: US)
  Receive Date: 20181228
  Receipt Date: 20181228
  Transmission Date: 20190205
  Serious: Yes (Disabling)
  Sender: FDA-Public Use
  Company Number: None

PATIENT
  Age: 23 Year
  Sex: Male
  Weight: 58.5 kg

DRUGS (1)
  1. FLUTICASONE PROPIONATE NASAL SPRAY USP 50 MCG 120 METERED SPRAYS [Suspect]
     Active Substance: FLUTICASONE PROPIONATE
     Indication: PRODUCT USED FOR UNKNOWN INDICATION
     Dosage: ?          OTHER ROUTE:NASAL SPRAY?
     Route: 055
     Dates: start: 20171030, end: 20181201

REACTIONS (1)
  - Epistaxis [None]

NARRATIVE: CASE EVENT DATE: 20180415
